FAERS Safety Report 25759865 (Version 2)
Quarter: 2025Q4

REPORT INFORMATION
  Report Type: Report from Study
  Country: US (occurrence: US)
  Receive Date: 20250904
  Receipt Date: 20251016
  Transmission Date: 20260117
  Serious: Yes (Other)
  Sender: ALEXION PHARMACEUTICALS
  Company Number: US-AstraZeneca-CH-00941206A

PATIENT
  Sex: Female

DRUGS (1)
  1. DAPAGLIFLOZIN [Suspect]
     Active Substance: DAPAGLIFLOZIN
     Dosage: UNK
     Route: 065

REACTIONS (11)
  - Visual impairment [Unknown]
  - Retinal haemorrhage [Unknown]
  - Vascular access site haemorrhage [Unknown]
  - Vitreous disorder [Unknown]
  - Vision blurred [Unknown]
  - Gait inability [Unknown]
  - Myocardial infarction [Unknown]
  - Scar [Unknown]
  - Vascular stent stenosis [Unknown]
  - Chest discomfort [Unknown]
  - Asthenia [Unknown]

NARRATIVE: CASE EVENT DATE: 20230101
